FAERS Safety Report 4356543-2 (Version None)
Quarter: 2004Q2

REPORT INFORMATION
  Report Type: 
  Country: None (occurrence: None)
  Receive Date: 20040506
  Receipt Date: 20040427
  Transmission Date: 20050107
  Serious: Yes (Death)
  Sender: FDA-Public Use
  Company Number: 04P-056-0258946-00

PATIENT

DRUGS (1)
  1. TRICOR [Suspect]
     Dosage: ORAL
     Route: 048

REACTIONS (1)
  - PULMONARY FIBROSIS [None]
